FAERS Safety Report 13738349 (Version 1)
Quarter: 2017Q3

REPORT INFORMATION
  Report Type: Spontaneous
  Country: CN (occurrence: CN)
  Receive Date: 20170710
  Receipt Date: 20170710
  Transmission Date: 20171127
  Serious: Yes (Hospitalization, Other)
  Sender: FDA-Public Use
  Company Number: CN-PFIZER INC-2017295052

PATIENT
  Age: 26 Year
  Sex: Male
  Weight: 52.5 kg

DRUGS (6)
  1. SOLU-MEDROL [Suspect]
     Active Substance: METHYLPREDNISOLONE SODIUM SUCCINATE
     Indication: NEOPLASM
  2. IDARUBICIN [Concomitant]
     Active Substance: IDARUBICIN
     Indication: CHEMOTHERAPY
     Dosage: 10 MG, UNK
     Dates: start: 20160912, end: 20160912
  3. IDARUBICIN [Concomitant]
     Active Substance: IDARUBICIN
     Dosage: 10 MG, UNK
     Dates: start: 20160918, end: 20160918
  4. VINDESINE [Concomitant]
     Active Substance: VINDESINE
     Dosage: 4 MG, UNK
     Dates: start: 20160918, end: 20160918
  5. VINDESINE [Concomitant]
     Active Substance: VINDESINE
     Indication: CHEMOTHERAPY
     Dosage: 4 MG, UNK
     Dates: start: 20160912, end: 20160912
  6. SOLU-MEDROL [Suspect]
     Active Substance: METHYLPREDNISOLONE SODIUM SUCCINATE
     Indication: CHEMOTHERAPY
     Dosage: 80 MG, 1X/DAY
     Route: 041
     Dates: start: 20160902, end: 20160919

REACTIONS (8)
  - Suicidal ideation [Recovering/Resolving]
  - Persecutory delusion [Recovering/Resolving]
  - Insomnia [Recovering/Resolving]
  - Mood swings [Recovering/Resolving]
  - Depressed mood [Recovering/Resolving]
  - Mental disorder [Recovering/Resolving]
  - Abnormal behaviour [Recovering/Resolving]
  - Agitation [Recovering/Resolving]

NARRATIVE: CASE EVENT DATE: 201609
